FAERS Safety Report 4371571-9 (Version None)
Quarter: 2004Q2

REPORT INFORMATION
  Report Type: 
  Country: None (occurrence: None)
  Receive Date: 20040607
  Receipt Date: 20040526
  Transmission Date: 20050107
  Serious: Yes (Other)
  Sender: FDA-Public Use
  Company Number: NSADSS2002035864

PATIENT
  Sex: Male

DRUGS (14)
  1. REMICADE [Suspect]
     Route: 041
  2. REMICADE [Suspect]
     Route: 041
  3. REMICADE [Suspect]
     Indication: CROHN'S DISEASE
     Route: 041
  4. MERCAPTOPURINE [Concomitant]
  5. STEROIDS [Concomitant]
  6. PENTASA [Concomitant]
  7. PENTASA [Concomitant]
  8. SOLU-MEDROL [Concomitant]
     Indication: PROPHYLAXIS
  9. BENADRYL [Concomitant]
     Indication: PROPHYLAXIS
  10. TYLENOL [Concomitant]
     Indication: PROPHYLAXIS
  11. FOLIC ACID [Concomitant]
  12. IRON [Concomitant]
  13. PEDIPRED [Concomitant]
  14. PRILOSEC [Concomitant]

REACTIONS (7)
  - ANAPHYLACTIC REACTION [None]
  - COLONIC HAEMORRHAGE [None]
  - DIARRHOEA HAEMORRHAGIC [None]
  - ENCEPHALITIS [None]
  - FLUSHING [None]
  - HEADACHE [None]
  - MYCOPLASMA INFECTION [None]
